FAERS Safety Report 18305218 (Version 1)
Quarter: 2020Q3

REPORT INFORMATION
  Report Type: Spontaneous
  Country: CA (occurrence: CA)
  Receive Date: 20200924
  Receipt Date: 20200924
  Transmission Date: 20201103
  Serious: Yes (Other)
  Sender: FDA-Public Use
  Company Number: CA-TEVA-2020-CA-1829977

PATIENT
  Age: 55 Year
  Sex: Female
  Weight: 73 kg

DRUGS (13)
  1. ACTEMRA [Interacting]
     Active Substance: TOCILIZUMAB
     Route: 042
  2. DIPHENHYDRAMINE HYDROCHLORIDE. [Concomitant]
     Active Substance: DIPHENHYDRAMINE HYDROCHLORIDE
     Route: 048
  3. PREDNISONE. [Concomitant]
     Active Substance: PREDNISONE
     Route: 065
  4. ACETAMINOPHEN. [Concomitant]
     Active Substance: ACETAMINOPHEN
     Route: 048
  5. DIPHENHYDRAMINE HYDROCHLORIDE. [Concomitant]
     Active Substance: DIPHENHYDRAMINE HYDROCHLORIDE
     Route: 048
  6. METHYLPREDNISOLONE SODIUM SUCCINATE. [Interacting]
     Active Substance: METHYLPREDNISOLONE SODIUM SUCCINATE
     Route: 042
  7. ACTEMRA [Interacting]
     Active Substance: TOCILIZUMAB
     Route: 065
  8. RIZATRIPTAN BENZOATE. [Concomitant]
     Active Substance: RIZATRIPTAN BENZOATE
     Route: 065
  9. ACYCLOVIR. [Suspect]
     Active Substance: ACYCLOVIR
     Route: 065
  10. RITUXIMAB. [Interacting]
     Active Substance: RITUXIMAB
     Route: 042
  11. CLARITIN [Concomitant]
     Active Substance: LORATADINE
     Route: 048
  12. METHYLPREDNISOLONE SODIUM SUCCINATE. [Interacting]
     Active Substance: METHYLPREDNISOLONE SODIUM SUCCINATE
     Route: 042
  13. ARAVA [Interacting]
     Active Substance: LEFLUNOMIDE
     Route: 065

REACTIONS (19)
  - Arthralgia [Not Recovered/Not Resolved]
  - Dust allergy [Not Recovered/Not Resolved]
  - Pain [Not Recovered/Not Resolved]
  - Drug interaction [Not Recovered/Not Resolved]
  - Oral pruritus [Not Recovered/Not Resolved]
  - Hypersensitivity [Not Recovered/Not Resolved]
  - Neuralgia [Not Recovered/Not Resolved]
  - Sinusitis [Not Recovered/Not Resolved]
  - Dizziness [Not Recovered/Not Resolved]
  - Dyspnoea [Not Recovered/Not Resolved]
  - Limb mass [Not Recovered/Not Resolved]
  - Urticaria [Not Recovered/Not Resolved]
  - Allergy to animal [Not Recovered/Not Resolved]
  - Bronchitis [Not Recovered/Not Resolved]
  - Ear pruritus [Not Recovered/Not Resolved]
  - Herpes zoster [Not Recovered/Not Resolved]
  - Infusion related reaction [Not Recovered/Not Resolved]
  - Throat irritation [Not Recovered/Not Resolved]
  - Weight fluctuation [Not Recovered/Not Resolved]
